FAERS Safety Report 4554603-4 (Version None)
Quarter: 2005Q1

REPORT INFORMATION
  Report Type: 
  Country: None (occurrence: None)
  Receive Date: 20050114
  Receipt Date: 20031023
  Transmission Date: 20050727
  Serious: Yes (Hospitalization)
  Sender: FDA-Public Use
  Company Number: GXKR2003US00547

PATIENT

DRUGS (2)
  1. IBUPROFEN (NGX)(IBUPROFEN) UNKNOWN [Suspect]
     Dosage: ONCE/SINGLE, ORAL
     Route: 048
  2. DILTIAZEM [Suspect]
     Dosage: 2400 MG, ONCE/SINGLE, ORAL
     Route: 048

REACTIONS (17)
  - ABDOMINAL DISCOMFORT [None]
  - ASTHENIA [None]
  - ATRIOVENTRICULAR BLOCK FIRST DEGREE [None]
  - BLOOD BILIRUBIN INCREASED [None]
  - BLOOD CREATINE PHOSPHOKINASE INCREASED [None]
  - BLOOD CREATINE PHOSPHOKINASE MB INCREASED [None]
  - DIZZINESS [None]
  - FATIGUE [None]
  - HEADACHE [None]
  - HYPERGLYCAEMIA [None]
  - HYPOTENSION [None]
  - ILEUS [None]
  - INTENTIONAL MISUSE [None]
  - METABOLIC ACIDOSIS [None]
  - RENAL IMPAIRMENT [None]
  - SOMNOLENCE [None]
  - SUICIDE ATTEMPT [None]
